FAERS Safety Report 5082140-X (Version None)
Quarter: 2006Q3

REPORT INFORMATION
  Report Type: 
  Country: None (occurrence: None)
  Receive Date: 20060817
  Receipt Date: 20060810
  Transmission Date: 20061208
  Serious: Yes (Hospitalization)
  Sender: FDA-Public Use
  Company Number: 2006UW15972

PATIENT
  Sex: Female

DRUGS (3)
  1. NEXIUM [Suspect]
     Indication: GASTROOESOPHAGEAL REFLUX DISEASE
     Route: 048
  2. TAGAMET [Concomitant]
  3. PREDNISONE [Concomitant]

REACTIONS (2)
  - PARALYSIS [None]
  - SYSTEMIC LUPUS ERYTHEMATOSUS [None]
